FAERS Safety Report 17115229 (Version 1)
Quarter: 2019Q4

REPORT INFORMATION
  Report Type: Spontaneous
  Country: US (occurrence: US)
  Receive Date: 20191204
  Receipt Date: 20191204
  Transmission Date: 20200122
  Serious: Yes (Hospitalization)
  Sender: FDA-Public Use
  Company Number: None

PATIENT
  Age: 64 Year
  Sex: Male
  Weight: 81 kg

DRUGS (6)
  1. FINASTERIDE. [Concomitant]
     Active Substance: FINASTERIDE
  2. FISH OIL [Concomitant]
     Active Substance: FISH OIL
  3. VITAMIN C [Concomitant]
     Active Substance: ASCORBIC ACID
  4. BETA CAROTENE. [Concomitant]
     Active Substance: BETA CAROTENE
  5. XANAX [Concomitant]
     Active Substance: ALPRAZOLAM
  6. XOLAIR [Suspect]
     Active Substance: OMALIZUMAB
     Indication: URTICARIA
     Dosage: ?          QUANTITY:2 INJECTION(S);?
     Dates: start: 20180925, end: 20191023

REACTIONS (6)
  - Nasal congestion [None]
  - Pain in extremity [None]
  - Peripheral coldness [None]
  - Headache [None]
  - Arthralgia [None]
  - Swelling [None]
